FAERS Safety Report 20433278 (Version 2)
Quarter: 2022Q1

REPORT INFORMATION
  Report Type: Spontaneous
  Country: US (occurrence: US)
  Receive Date: 20220205
  Receipt Date: 20220212
  Transmission Date: 20220423
  Serious: No
  Sender: FDA-Public Use
  Company Number: US-SANOFI-00952365

PATIENT
  Sex: Male

DRUGS (1)
  1. SOLIQUA 100/33 [Suspect]
     Active Substance: INSULIN GLARGINE\LIXISENATIDE
     Indication: Type 2 diabetes mellitus
     Dosage: DRUG STRUCTURE DOSAGE : 60 UNITS DRUG INTERVAL DOSAGE : EACH MORNING

REACTIONS (3)
  - Cough [Unknown]
  - Blood glucose increased [Unknown]
  - Incorrect dose administered [Unknown]
